FAERS Safety Report 25164409 (Version 1)
Quarter: 2025Q2

REPORT INFORMATION
  Report Type: Spontaneous
  Country: MX (occurrence: MX)
  Receive Date: 20250405
  Receipt Date: 20250405
  Transmission Date: 20250716
  Serious: Yes (Other)
  Sender: BAYER
  Company Number: MX-BAYER-2025A045855

PATIENT
  Age: 47 Year
  Sex: Female

DRUGS (6)
  1. FINERENONE [Suspect]
     Active Substance: FINERENONE
  2. DAPAGLIFLOZIN [Concomitant]
     Active Substance: DAPAGLIFLOZIN
  3. METFORMIN [Concomitant]
     Active Substance: METFORMIN HYDROCHLORIDE
  4. LOSARTAN [Concomitant]
     Active Substance: LOSARTAN
  5. PROTEIN [Concomitant]
     Active Substance: PROTEIN
     Indication: Hepatitis
  6. PROTEIN [Concomitant]
     Active Substance: PROTEIN
     Indication: Nephrotic syndrome

REACTIONS (3)
  - Rhabdomyolysis [None]
  - Pain in extremity [None]
  - Blood creatine phosphokinase increased [None]

NARRATIVE: CASE EVENT DATE: 20250221
